FAERS Safety Report 10308684 (Version 1)
Quarter: 2014Q3

REPORT INFORMATION
  Report Type: Spontaneous
  Country: US (occurrence: US)
  Receive Date: 20140716
  Receipt Date: 20140716
  Transmission Date: 20150326
  Serious: No
  Sender: FDA-Public Use
  Company Number: US-PFIZER INC-2014195867

PATIENT
  Age: 71 Year
  Sex: Female
  Weight: 67.12 kg

DRUGS (1)
  1. ADVIL PM [Suspect]
     Active Substance: DIPHENHYDRAMINE CITRATE\IBUPROFEN
     Indication: ARTHRALGIA
     Dosage: 200 MG, ONCE A DAY (AT NIGHT)
     Route: 048
     Dates: start: 201406, end: 20140709

REACTIONS (3)
  - Feeling abnormal [Unknown]
  - Body height decreased [Unknown]
  - Laziness [Unknown]

NARRATIVE: CASE EVENT DATE: 2014
